FAERS Safety Report 8208132 (Version 5)
Quarter: 2014Q2

REPORT INFORMATION
  Report Type: Spontaneous
  Country: US (occurrence: US)
  Receive Date: 20111028
  Receipt Date: 20140402
  Transmission Date: 20141212
  Serious: Yes (Other)
  Sender: FDA-Public Use
  Company Number: US-ROCHE-1007557

PATIENT
  Age: 29 Year
  Sex: Male
  Weight: 86.26 kg

DRUGS (2)
  1. ACCUTANE [Suspect]
     Indication: ACNE
     Dosage: 60 MG IN MORNING AND 40 MG IN EVENING
     Route: 065
     Dates: start: 19990318, end: 19990819
  2. ACCUTANE [Suspect]
     Route: 065
     Dates: end: 199911

REACTIONS (11)
  - Colitis ulcerative [Unknown]
  - Crohn^s disease [Unknown]
  - Inflammatory bowel disease [Unknown]
  - Injury [Unknown]
  - Depression [Unknown]
  - Anal abscess [Unknown]
  - Irritable bowel syndrome [Unknown]
  - Lip dry [Unknown]
  - Nasal dryness [Unknown]
  - Dry skin [Unknown]
  - Epistaxis [Unknown]
